FAERS Safety Report 6718566-5 (Version None)
Quarter: 2010Q2

REPORT INFORMATION
  Report Type: 
  Country: None (occurrence: None)
  Receive Date: 20100503
  Receipt Date: 20100416
  Transmission Date: 20101027
  Serious: Yes (Hospitalization)
  Sender: FDA-Public Use
  Company Number: A-US2010-35405

PATIENT
  Age: 65 Year
  Sex: Female

DRUGS (1)
  1. TRACLEER [Suspect]
     Indication: PULMONARY ARTERIAL HYPERTENSION
     Dosage: ORAL
     Route: 048
     Dates: start: 20100313, end: 20100402

REACTIONS (7)
  - CHEST PAIN [None]
  - CONVULSION [None]
  - DEVICE ELECTRICAL FINDING [None]
  - DYSPNOEA [None]
  - MALAISE [None]
  - NAUSEA [None]
  - SYNCOPE [None]
